FAERS Safety Report 6646834-4 (Version None)
Quarter: 2010Q1

REPORT INFORMATION
  Report Type: 
  Country: None (occurrence: None)
  Receive Date: 20100323
  Receipt Date: 20100311
  Transmission Date: 20100710
  Serious: Yes (Other)
  Sender: FDA-Public Use
  Company Number: JP-PFIZER INC-2010033109

PATIENT
  Age: 52 Year
  Sex: Female

DRUGS (3)
  1. GABAPEN [Suspect]
     Indication: PAIN
     Dosage: UNK
     Route: 048
     Dates: start: 20100107, end: 20100115
  2. MORPHINE [Concomitant]
     Dosage: UNK
     Route: 042
     Dates: start: 20100107, end: 20100115
  3. LANDSEN [Concomitant]
     Dosage: UNK
     Route: 048
     Dates: start: 20100107, end: 20100115

REACTIONS (1)
  - DRUG ERUPTION [None]
